FAERS Safety Report 4579644-2 (Version None)
Quarter: 2005Q1

REPORT INFORMATION
  Report Type: 
  Country: None (occurrence: None)
  Receive Date: 20050210
  Receipt Date: 20050210
  Transmission Date: 20050727
  Serious: Yes (Life-Threatening, Disabling)
  Sender: FDA-Public Use
  Company Number: None

PATIENT
  Age: 55 Year
  Sex: Male
  Weight: 90.7194 kg

DRUGS (1)
  1. LIPITOR [Suspect]

REACTIONS (5)
  - INTERVERTEBRAL DISC DISORDER [None]
  - MUSCLE ATROPHY [None]
  - MUSCLE RUPTURE [None]
  - MUSCULAR WEAKNESS [None]
  - SPINAL DISORDER [None]
